FAERS Safety Report 20417174 (Version 1)
Quarter: 2022Q1

REPORT INFORMATION
  Report Type: Spontaneous
  Country: CZ (occurrence: None)
  Receive Date: 20220202
  Receipt Date: 20220202
  Transmission Date: 20220423
  Serious: Yes (Other)
  Sender: FDA-Public Use
  Company Number: CZ-ROCHE-3009676

PATIENT
  Sex: Female

DRUGS (1)
  1. ROZLYTREK [Suspect]
     Active Substance: ENTRECTINIB
     Indication: Product used for unknown indication
     Route: 065
     Dates: start: 202110

REACTIONS (4)
  - Dyspnoea [Unknown]
  - Cyanosis [Unknown]
  - Oedema [Unknown]
  - Cardiac failure [Unknown]
